FAERS Safety Report 9323973 (Version 2)
Quarter: 2013Q2

REPORT INFORMATION
  Report Type: Spontaneous
  Country: JP (occurrence: JP)
  Receive Date: 20130603
  Receipt Date: 20130605
  Transmission Date: 20140414
  Serious: Yes (Hospitalization, Other)
  Sender: FDA-Public Use
  Company Number: JP-BAYER-2013-064159

PATIENT
  Age: 86 Year
  Sex: Female

DRUGS (2)
  1. BAYASPIRIN [Suspect]
     Route: 048
  2. AMLODIPINE [Concomitant]
     Route: 048

REACTIONS (5)
  - Fall [None]
  - Humerus fracture [None]
  - Vascular pseudoaneurysm ruptured [None]
  - Arterial haemorrhage [None]
  - Anaemia [None]
